FAERS Safety Report 26105847 (Version 1)
Quarter: 2025Q4

REPORT INFORMATION
  Report Type: Spontaneous
  Country: US (occurrence: US)
  Receive Date: 20251201
  Receipt Date: 20251201
  Transmission Date: 20260118
  Serious: Yes (Other)
  Sender: SANOFI AVENTIS
  Company Number: US-SA-2025SA357503

PATIENT
  Sex: Female

DRUGS (3)
  1. DUPIXENT [Suspect]
     Active Substance: DUPILUMAB
     Indication: Dermatitis atopic
     Dosage: 300 MG, Q4W
     Route: 058
     Dates: start: 202107
  2. NEOMYCIN [Concomitant]
     Active Substance: NEOMYCIN
  3. POLYMYXIN B [Concomitant]
     Active Substance: POLYMYXIN B

REACTIONS (1)
  - Phlyctenular keratoconjunctivitis [Unknown]
